FAERS Safety Report 21628593 (Version 1)
Quarter: 2022Q4

REPORT INFORMATION
  Report Type: Spontaneous
  Country: US (occurrence: None)
  Receive Date: 20221121
  Receipt Date: 20221121
  Transmission Date: 20230113
  Serious: Yes (Hospitalization)
  Sender: FDA-Public Use
  Company Number: None

PATIENT
  Age: 31 Year
  Sex: Female
  Weight: 75.6 kg

DRUGS (10)
  1. VENLAFAXINE HYDROCHLORIDE [Suspect]
     Active Substance: VENLAFAXINE HYDROCHLORIDE
     Indication: Post-traumatic stress disorder
     Dosage: 1 CAPSULE ORAL ?
     Route: 048
  2. VENLAFAXINE HYDROCHLORIDE [Suspect]
     Active Substance: VENLAFAXINE HYDROCHLORIDE
     Indication: Anxiety
  3. VENLAFAXINE HYDROCHLORIDE [Suspect]
     Active Substance: VENLAFAXINE HYDROCHLORIDE
     Indication: Panic attack
  4. LORAZEPAM [Concomitant]
     Active Substance: LORAZEPAM
  5. VENLAFAXINE [Concomitant]
     Active Substance: VENLAFAXINE HYDROCHLORIDE
  6. SUMATRIPTAN [Concomitant]
     Active Substance: SUMATRIPTAN
  7. PANTOPRAZOLE [Concomitant]
     Active Substance: PANTOPRAZOLE
  8. BACLOFEN [Concomitant]
     Active Substance: BACLOFEN
  9. ONDANSETRON [Concomitant]
     Active Substance: ONDANSETRON
  10. SUCRALFATE [Concomitant]
     Active Substance: SUCRALFATE

REACTIONS (21)
  - Night sweats [None]
  - Melaena [None]
  - Haematochezia [None]
  - Blood urine [None]
  - Dysuria [None]
  - Musculoskeletal stiffness [None]
  - Musculoskeletal stiffness [None]
  - Dyspnoea [None]
  - Chromaturia [None]
  - Nausea [None]
  - Vomiting [None]
  - Abdominal pain upper [None]
  - Tremor [None]
  - Tremor [None]
  - Haematemesis [None]
  - Ocular icterus [None]
  - Yellow skin [None]
  - Dyspepsia [None]
  - Decreased appetite [None]
  - Weight decreased [None]
  - Coordination abnormal [None]

NARRATIVE: CASE EVENT DATE: 20220920
